FAERS Safety Report 23291591 (Version 1)
Quarter: 2023Q4

REPORT INFORMATION
  Report Type: Spontaneous
  Country: JP (occurrence: JP)
  Receive Date: 20231213
  Receipt Date: 20231213
  Transmission Date: 20240109
  Serious: Yes (Hospitalization)
  Sender: FDA-Public Use
  Company Number: JP-STRIDES ARCOLAB LIMITED-2023SP018559

PATIENT
  Age: 76 Year
  Sex: Male

DRUGS (6)
  1. FUROSEMIDE [Suspect]
     Active Substance: FUROSEMIDE
     Indication: Cardiac failure acute
     Dosage: 60 MILLIGRAM/DAY
     Route: 065
  2. SPIRONOLACTONE [Suspect]
     Active Substance: SPIRONOLACTONE
     Indication: Cardiac failure acute
     Dosage: 25 MILLIGRAM/DAY
     Route: 065
  3. AZOSEMIDE [Suspect]
     Active Substance: AZOSEMIDE
     Indication: Cardiac failure acute
     Dosage: 30 MILLIGRAM/DAY
     Route: 065
  4. AZOSEMIDE [Suspect]
     Active Substance: AZOSEMIDE
     Dosage: 60 MILLIGRAM/DAY
     Route: 065
  5. EMPAGLIFLOZIN [Suspect]
     Active Substance: EMPAGLIFLOZIN
     Indication: Cardiac failure acute
     Dosage: 10 MILLIGRAM PER DAY
     Route: 065
  6. CANDESARTAN [Concomitant]
     Active Substance: CANDESARTAN
     Indication: Cardiac failure acute
     Dosage: 4 MILLIGRAM (PER DAY)
     Route: 065

REACTIONS (2)
  - Chronic kidney disease [Recovered/Resolved]
  - Drug ineffective [Unknown]
